FAERS Safety Report 22022584 (Version 3)
Quarter: 2023Q1

REPORT INFORMATION
  Report Type: Report from Study
  Country: CA (occurrence: CA)
  Receive Date: 20230222
  Receipt Date: 20230321
  Transmission Date: 20230418
  Serious: Yes (Hospitalization, Other)
  Sender: FDA-Public Use
  Company Number: CA-BEH-2023155516

PATIENT
  Age: 81 Year
  Sex: Female
  Weight: 82.086 kg

DRUGS (11)
  1. HIZENTRA [Suspect]
     Active Substance: HUMAN IMMUNOGLOBULIN G
     Indication: Secondary immunodeficiency
     Dosage: 8 GRAM, QW
     Route: 065
     Dates: start: 20230123, end: 20230207
  2. IMBRUVICA [Concomitant]
     Active Substance: IBRUTINIB
  3. MAGNESIUM [Concomitant]
     Active Substance: MAGNESIUM
  4. SYNTHROID [Concomitant]
     Active Substance: LEVOTHYROXINE SODIUM
  5. CANDESARTAN [Concomitant]
     Active Substance: CANDESARTAN
  6. ACETAMINOPHEN [Concomitant]
     Active Substance: ACETAMINOPHEN
  7. MONTELUKAST [Concomitant]
     Active Substance: MONTELUKAST SODIUM
  8. ATIVAN [Concomitant]
     Active Substance: LORAZEPAM
  9. PANTOPRAZOLE SODIUM [Concomitant]
     Active Substance: PANTOPRAZOLE SODIUM
  10. VITAMIN D NOS [Concomitant]
     Active Substance: VITAMIN D NOS
  11. FUROSEMIDE [Concomitant]
     Active Substance: FUROSEMIDE

REACTIONS (10)
  - Asthenia [Unknown]
  - Diarrhoea [Unknown]
  - Hypophagia [Unknown]
  - Pneumonia [Unknown]
  - Ill-defined disorder [Unknown]
  - Dehydration [Unknown]
  - Renal impairment [Unknown]
  - Peripheral swelling [Unknown]
  - Blister [Unknown]
  - Asthenia [Unknown]
